FAERS Safety Report 24827953 (Version 1)
Quarter: 2025Q1

REPORT INFORMATION
  Report Type: Spontaneous
  Country: GB (occurrence: GB)
  Receive Date: 20250109
  Receipt Date: 20250109
  Transmission Date: 20250409
  Serious: Yes (Disabling, Other)
  Sender: PFIZER
  Company Number: None

PATIENT
  Age: 17 Year
  Sex: Male

DRUGS (1)
  1. LEVETIRACETAM [Suspect]
     Active Substance: LEVETIRACETAM

REACTIONS (4)
  - Temporal lobe epilepsy [Not Recovered/Not Resolved]
  - Epileptic aura [Not Recovered/Not Resolved]
  - Partial seizures [Unknown]
  - Psychotic disorder [Unknown]
